FAERS Safety Report 7465747-1 (Version None)
Quarter: 2011Q2

REPORT INFORMATION
  Report Type: 
  Country: None (occurrence: None)
  Receive Date: 20110509
  Receipt Date: 20110120
  Transmission Date: 20111010
  Serious: Yes (Hospitalization)
  Sender: FDA-Public Use
  Company Number: TW-BAYER-2011-013944

PATIENT
  Age: 51 Year
  Sex: Female

DRUGS (30)
  1. MORNIFLUMATE [Concomitant]
     Indication: URINARY TRACT INFECTION
     Dosage: 3 G (1 G EVERY 8 HR)
     Dates: start: 20101122, end: 20101127
  2. VITAMIN B COMPLEX CAP [Concomitant]
     Indication: MEDICAL DIET
     Dosage: 1 CAPSULE DAILY
     Dates: start: 20101122, end: 20101129
  3. DICLOFENAC [Concomitant]
     Indication: HAEMORRHOIDS
     Dosage: 25 MG, QID
     Dates: start: 20110113, end: 20110118
  4. ENTECAVIR [Concomitant]
     Indication: HEPATITIS B
     Dosage: 0.5 MG, QD
     Dates: start: 20100809, end: 20110120
  5. PROPRANOLOL [Concomitant]
     Indication: VARICES OESOPHAGEAL
     Dosage: 30 MG, TID
     Dates: start: 20100809, end: 20110120
  6. BROEN-C [Concomitant]
     Indication: HAEMORRHOIDS
     Dosage: 4 TABLETS (1 TABLET 4 TIMES DAILY)
     Dates: start: 20110113, end: 20110118
  7. NEXAVAR [Suspect]
     Dosage: 400 MG, BID
     Route: 048
     Dates: start: 20101208, end: 20101228
  8. LACTULOSE [Concomitant]
     Dosage: 15 ML, TID
     Dates: start: 20101122, end: 20101126
  9. ALBUMIN (HUMAN) [Concomitant]
     Indication: HYPOALBUMINAEMIA
     Dosage: 100 ML (50 ML EVERY 12 HR)
     Dates: start: 20101126, end: 20101126
  10. ALBUMIN (HUMAN) [Concomitant]
     Dosage: 50 ML, STAT
     Dates: start: 20101125, end: 20101125
  11. ALCOS-ANAL [BENZOCAINE,CHLOROTHYMOL,SODIUM MORRHUATE] [Concomitant]
     Indication: HAEMORRHOIDS
     Dosage: ONCE DAILY
     Dates: start: 20110113
  12. NEXAVAR [Suspect]
     Dosage: 400 MG, BID
     Route: 048
     Dates: end: 20110118
  13. LACTULOSE [Concomitant]
     Dosage: 15 ML, BID
     Dates: start: 20101118, end: 20101121
  14. LACTULOSE [Concomitant]
     Dosage: 15 ML, TID
     Dates: start: 20101127, end: 20110118
  15. PARACETAMOL [Concomitant]
     Indication: UPPER RESPIRATORY TRACT INFECTION
     Dosage: 500 MG, QID
     Dates: start: 20101126, end: 20101127
  16. FUROSEMIDE [Concomitant]
     Indication: ASCITES
     Dosage: 20 MG, STAT
     Dates: start: 20101125, end: 20101125
  17. TRIAMCINOLONE ACETONIDE [Concomitant]
     Indication: STOMATITIS
     Dosage: 1 G, TID
     Dates: start: 20101110, end: 20101112
  18. LACTULOSE [Concomitant]
     Indication: HEPATIC ENCEPHALOPATHY
     Dosage: 30 ML, STAT
     Dates: start: 20101116, end: 20101116
  19. LANSOPRAZOLE [Concomitant]
     Indication: GASTRIC ULCER
     Dosage: 30 MG, QD
     Dates: start: 20101018, end: 20101114
  20. MORNIFLUMATE [Concomitant]
     Indication: INFECTION PROPHYLAXIS
     Dosage: 3 G (1 G EVERY 8 HR)
     Dates: start: 20101116, end: 20101118
  21. BENZONATATE [Concomitant]
     Indication: UPPER RESPIRATORY TRACT INFECTION
     Dosage: 100 MG, TID
     Dates: start: 20101126, end: 20101127
  22. CHLORAMPHENICOL [Concomitant]
     Indication: INFECTION PROPHYLAXIS
     Dosage: 250 MG, QID
     Dates: start: 20110113, end: 20110118
  23. NEXAVAR [Suspect]
     Dosage: UNK
     Dates: start: 20110209
  24. FUROSEMIDE [Concomitant]
     Indication: PROPHYLAXIS
     Dosage: 20 MG, QD
     Dates: start: 20100809, end: 20110120
  25. LACTULOSE [Concomitant]
     Indication: HEPATIC ENCEPHALOPATHY PROPHYLAXIS
     Dosage: 15 ML, QID
     Dates: start: 20101116, end: 20101117
  26. LACTULOSE [Concomitant]
     Dosage: 30 ML, STAT
     Dates: start: 20101122, end: 20101122
  27. NEXAVAR [Suspect]
     Indication: HEPATIC NEOPLASM MALIGNANT
     Dosage: 400 MG, BID
     Route: 048
     Dates: start: 20101027, end: 20101115
  28. FUROSEMIDE [Concomitant]
     Indication: PLEURAL EFFUSION
     Dosage: 20 MG, QD
     Dates: start: 20101126, end: 20101126
  29. FUROSEMIDE [Concomitant]
     Indication: HYPOALBUMINAEMIA
  30. ALCOS-ANAL [BENZOCAINE,CHLOROTHYMOL,SODIUM MORRHUATE] [Concomitant]
     Indication: HAEMORRHOIDAL HAEMORRHAGE

REACTIONS (2)
  - OESOPHAGEAL VARICES HAEMORRHAGE [None]
  - HEPATIC ENCEPHALOPATHY [None]
